FAERS Safety Report 4972303-3 (Version None)
Quarter: 2006Q2

REPORT INFORMATION
  Report Type: 
  Country: None (occurrence: None)
  Receive Date: 20060413
  Receipt Date: 20060411
  Transmission Date: 20061013
  Serious: Yes (Hospitalization)
  Sender: FDA-Public Use
  Company Number: DE-BRISTOL-MYERS SQUIBB COMPANY-13344148

PATIENT
  Age: 41 Year
  Sex: Female

DRUGS (5)
  1. CYCLOPHOSPHAMIDE [Suspect]
  2. DOXORUBICIN HCL [Suspect]
  3. NEULASTA [Suspect]
     Indication: CHEMOTHERAPY
     Route: 058
  4. LEUPROLIDE ACETATE [Suspect]
  5. DOCETAXEL [Suspect]

REACTIONS (6)
  - BACK PAIN [None]
  - BONE PAIN [None]
  - HOT FLUSH [None]
  - NEUTROPENIA [None]
  - RESTLESSNESS [None]
  - SLEEP DISORDER [None]
